FAERS Safety Report 6686326-X (Version None)
Quarter: 2010Q2

REPORT INFORMATION
  Report Type: 
  Country: None (occurrence: None)
  Receive Date: 20100415
  Receipt Date: 20100415
  Transmission Date: 20101027
  Serious: Yes (Other)
  Sender: FDA-Public Use
  Company Number: None

PATIENT
  Sex: Female

DRUGS (1)
  1. BUPROPRION HCL XL [Suspect]
     Indication: MAJOR DEPRESSION
     Dosage: 150 MG (ORAL) AND 300 MG 1 EACH DAILY

REACTIONS (2)
  - ANGER [None]
  - VOMITING [None]
